FAERS Safety Report 7442520-1 (Version None)
Quarter: 2011Q2

REPORT INFORMATION
  Report Type: 
  Country: None (occurrence: None)
  Receive Date: 20110428
  Receipt Date: 20110422
  Transmission Date: 20111010
  Serious: Yes (Hospitalization)
  Sender: FDA-Public Use
  Company Number: US-B.I. PHARMACEUTICALS,INC./RIDGEFIELD-2011-BP-11541BP

PATIENT
  Sex: Female

DRUGS (9)
  1. ADVAIR DISKUS 100/50 [Concomitant]
     Indication: CHRONIC OBSTRUCTIVE PULMONARY DISEASE
  2. PRILOSEC OTC [Concomitant]
     Indication: GASTROOESOPHAGEAL REFLUX DISEASE
  3. LISINOPRIL [Concomitant]
     Indication: HYPERTENSION
  4. SINGULAIR [Concomitant]
     Indication: CHRONIC OBSTRUCTIVE PULMONARY DISEASE
  5. XANAX [Concomitant]
     Indication: ANXIETY
  6. CARDIZEM [Concomitant]
     Indication: HYPERTENSION
  7. COMBIVENT [Suspect]
     Indication: CHRONIC OBSTRUCTIVE PULMONARY DISEASE
     Dosage: 8 PUF
     Route: 055
     Dates: start: 20040101
  8. HYDROCHLOROTHIAZIDE [Concomitant]
     Indication: HYPERTENSION
  9. MYCELEX [Concomitant]
     Indication: ORAL CANDIDIASIS

REACTIONS (2)
  - RESPIRATORY DISTRESS [None]
  - CHRONIC OBSTRUCTIVE PULMONARY DISEASE [None]
